FAERS Safety Report 18325856 (Version 4)
Quarter: 2020Q4

REPORT INFORMATION
  Report Type: Spontaneous
  Country: US (occurrence: US)
  Receive Date: 20200929
  Receipt Date: 20201204
  Transmission Date: 20210113
  Serious: Yes (Other)
  Sender: FDA-Public Use
  Company Number: US-PFIZER INC-2017320611

PATIENT
  Age: 41 Year
  Sex: Male

DRUGS (2)
  1. GENOTROPIN MQ [Suspect]
     Active Substance: SOMATROPIN
     Dosage: 0.4 MG, DAILY
     Route: 058
     Dates: start: 2015
  2. GENOTROPIN MQ [Suspect]
     Active Substance: SOMATROPIN
     Dosage: 0.8 MG

REACTIONS (6)
  - Blindness [Unknown]
  - Product prescribing error [Unknown]
  - Muscle injury [Unknown]
  - Product dose omission issue [Unknown]
  - Feeling abnormal [Unknown]
  - Visual impairment [Unknown]
